FAERS Safety Report 24073983 (Version 1)
Quarter: 2024Q3

REPORT INFORMATION
  Report Type: Spontaneous
  Country: US (occurrence: None)
  Receive Date: 20240710
  Receipt Date: 20240710
  Transmission Date: 20241016
  Serious: No
  Sender: Public
  Company Number: None

PATIENT
  Age: 52 Year
  Sex: Female

DRUGS (9)
  1. XDEMVY [Suspect]
     Active Substance: LOTILANER
     Indication: Blepharitis
     Dosage: 1 DROPS -GTT BID INTRAOCULAR
     Route: 014
     Dates: start: 20240619, end: 20240608
  2. XDEMVY [Suspect]
     Active Substance: LOTILANER
     Indication: Acariasis
  3. MAGNESIUM [Concomitant]
     Active Substance: MAGNESIUM
  4. VITAMINS [Concomitant]
     Active Substance: VITAMINS
  5. VITAMIN D3 [Concomitant]
     Active Substance: CHOLECALCIFEROL
  6. VALAVYVLOVIR [Concomitant]
  7. DICLOFENAC POTASSIUM [Concomitant]
     Active Substance: DICLOFENAC POTASSIUM
  8. PRAMIPEXOLE [Concomitant]
     Active Substance: PRAMIPEXOLE\PRAMIPEXOLE DIHYDROCHLORIDE
  9. EYSUVIS [Concomitant]
     Active Substance: LOTEPREDNOL ETABONATE

REACTIONS (2)
  - Hordeolum [None]
  - Therapy cessation [None]

NARRATIVE: CASE EVENT DATE: 20240710
